APPROVED DRUG PRODUCT: LICART
Active Ingredient: DICLOFENAC EPOLAMINE
Strength: 1.3%
Dosage Form/Route: SYSTEM;TOPICAL
Application: N206976 | Product #001
Applicant: IBSA INSTITUT BIOCHIMIQUE SA
Approved: Dec 19, 2018 | RLD: Yes | RS: Yes | Type: RX

PATENTS:
Patent 11351133 | Expires: Feb 20, 2035
Patent 11344520 | Expires: Feb 20, 2035